FAERS Safety Report 23739410 (Version 4)
Quarter: 2024Q3

REPORT INFORMATION
  Report Type: Spontaneous
  Country: US (occurrence: US)
  Receive Date: 20240413
  Receipt Date: 20240705
  Transmission Date: 20241017
  Serious: No
  Sender: SANOFI AVENTIS
  Company Number: US-SA-SAC20240406000116

PATIENT
  Age: 58 Year
  Sex: Female

DRUGS (2)
  1. DUPIXENT [Suspect]
     Active Substance: DUPILUMAB
     Indication: Dermatitis atopic
     Dosage: 600 MG, 1X
     Route: 058
     Dates: start: 20240314, end: 20240314
  2. DUPIXENT [Suspect]
     Active Substance: DUPILUMAB
     Dosage: 300 MG, QOW
     Route: 058
     Dates: start: 20240328

REACTIONS (11)
  - Scratch [Unknown]
  - Laryngitis [Not Recovered/Not Resolved]
  - Bronchitis [Not Recovered/Not Resolved]
  - Malaise [Unknown]
  - Periorbital irritation [Recovered/Resolved]
  - Sinusitis [Not Recovered/Not Resolved]
  - Nasopharyngitis [Unknown]
  - Erythema [Recovered/Resolved]
  - Eye pruritus [Recovered/Resolved]
  - Dry eye [Recovered/Resolved]
  - Injection site pain [Unknown]

NARRATIVE: CASE EVENT DATE: 20240101
